FAERS Safety Report 9171702 (Version 1)
Quarter: 2013Q1

REPORT INFORMATION
  Report Type: Spontaneous
  Country: AT (occurrence: None)
  Receive Date: 20130313
  Receipt Date: 20130313
  Transmission Date: 20140127
  Serious: No
  Sender: FDA-Public Use
  Company Number: AEAUT201200382

PATIENT
  Age: 46 Year
  Sex: Male
  Weight: 130 kg

DRUGS (10)
  1. PROLASTIN [Suspect]
     Indication: ALPHA-1 ANTI-TRYPSIN DEFICIENCY
     Route: 042
     Dates: start: 20120712
  2. HYDAL [Concomitant]
  3. ACEMIN [Concomitant]
  4. LASILACTON [Concomitant]
  5. PANTOPRAZOL [Concomitant]
  6. KALLORAL [Concomitant]
  7. PASPERTIN [Concomitant]
  8. SYMBICORT FORTE [Concomitant]
  9. BERODUAL DA [Concomitant]
  10. OXYCODON [Concomitant]

REACTIONS (12)
  - Pain [None]
  - Muscle spasms [None]
  - Self-medication [None]
  - Gait disturbance [None]
  - Blood pH increased [None]
  - PCO2 decreased [None]
  - PO2 decreased [None]
  - Oxygen saturation decreased [None]
  - Blood calcium decreased [None]
  - Blood creatine phosphokinase increased [None]
  - Blood creatine phosphokinase MB increased [None]
  - Convulsion [None]
